FAERS Safety Report 9047049 (Version 1)
Quarter: 2013Q1

REPORT INFORMATION
  Report Type: Spontaneous
  Country: US (occurrence: None)
  Receive Date: 20130129
  Receipt Date: 20130129
  Transmission Date: 20140127
  Serious: Yes (Other)
  Sender: FDA-Public Use
  Company Number: None

PATIENT
  Age: 59 Year
  Sex: Female
  Weight: 90.72 kg

DRUGS (1)
  1. TEKTURNA [Suspect]
     Indication: HYPERTENSION
     Dosage: 1 TABLET ONE DAILY
     Dates: start: 20121118, end: 20121222

REACTIONS (5)
  - Rash generalised [None]
  - Rash pruritic [None]
  - Eye pruritus [None]
  - Rash erythematous [None]
  - Wrong technique in drug usage process [None]
